FAERS Safety Report 10568491 (Version 1)
Quarter: 2014Q4

REPORT INFORMATION
  Report Type: Spontaneous
  Country: CA (occurrence: CA)
  Receive Date: 20141106
  Receipt Date: 20141106
  Transmission Date: 20150529
  Serious: Yes (Hospitalization, Other)
  Sender: FDA-Public Use
  Company Number: CA-SA-2014SA148046

PATIENT
  Age: 47 Year
  Sex: Male
  Weight: 145 kg

DRUGS (140)
  1. OXYCODONE [Suspect]
     Active Substance: OXYCODONE
     Route: 065
  2. OXYCONTIN [Suspect]
     Active Substance: OXYCODONE HYDROCHLORIDE
     Route: 065
  3. OXYCONTIN [Suspect]
     Active Substance: OXYCODONE HYDROCHLORIDE
     Route: 065
  4. OXYCONTIN [Suspect]
     Active Substance: OXYCODONE HYDROCHLORIDE
     Route: 065
  5. OXYCONTIN [Suspect]
     Active Substance: OXYCODONE HYDROCHLORIDE
     Route: 065
  6. OXYCONTIN [Suspect]
     Active Substance: OXYCODONE HYDROCHLORIDE
     Route: 065
  7. ALTACE [Concomitant]
     Active Substance: RAMIPRIL
  8. APO-FUROSEMIDE [Concomitant]
  9. ATIVAN [Concomitant]
     Active Substance: LORAZEPAM
  10. LIPIDIL [Concomitant]
     Active Substance: FENOFIBRATE
  11. LORAZEPAM. [Concomitant]
     Active Substance: LORAZEPAM
  12. LOVENOX [Concomitant]
     Active Substance: ENOXAPARIN SODIUM
     Dosage: FORM: SOLUTION SUBCUTANEOUS
  13. NU-COTRIMOX [Concomitant]
  14. DEMEROL [Suspect]
     Active Substance: MEPERIDINE HYDROCHLORIDE
     Route: 030
  15. DILAUDID [Suspect]
     Active Substance: HYDROMORPHONE HYDROCHLORIDE
     Route: 065
  16. FENTANYL. [Suspect]
     Active Substance: FENTANYL
     Dosage: FORM: PATCH
     Route: 065
  17. HYDROMORPH CONTIN [Suspect]
     Active Substance: HYDROMORPHONE
     Route: 065
  18. OXYCONTIN [Suspect]
     Active Substance: OXYCODONE HYDROCHLORIDE
     Route: 065
  19. OXYCONTIN [Suspect]
     Active Substance: OXYCODONE HYDROCHLORIDE
     Route: 065
  20. OXYCONTIN [Suspect]
     Active Substance: OXYCODONE HYDROCHLORIDE
     Route: 065
  21. OXYCONTIN [Suspect]
     Active Substance: OXYCODONE HYDROCHLORIDE
     Route: 065
  22. OXYCODONE [Suspect]
     Active Substance: OXYCODONE
     Route: 065
  23. PMS-HYDROMORPHONE [Suspect]
     Active Substance: HYDROMORPHONE HYDROCHLORIDE
     Route: 065
  24. EZETROL [Concomitant]
     Active Substance: EZETIMIBE
  25. LOPERAMIDE [Concomitant]
     Active Substance: LOPERAMIDE
  26. NOVO-CLINDAMYCIN [Concomitant]
  27. PROCTOSEDYL [Concomitant]
     Active Substance: DIBUCAINE HYDROCHLORIDE\HYDROCORTISONE
  28. SEROQUEL [Concomitant]
     Active Substance: QUETIAPINE FUMARATE
  29. ZAROXOLYN [Concomitant]
     Active Substance: METOLAZONE
  30. DURAGESIC [Suspect]
     Active Substance: FENTANYL
     Dosage: FORM: PATCH
     Route: 065
  31. DURAGESIC [Suspect]
     Active Substance: FENTANYL
     Route: 065
  32. HYDROMORPH CONTIN [Suspect]
     Active Substance: HYDROMORPHONE
     Route: 065
  33. HYDROMORPH CONTIN [Suspect]
     Active Substance: HYDROMORPHONE
     Route: 065
  34. HYDROMORPHONE [Suspect]
     Active Substance: HYDROMORPHONE
     Route: 065
  35. MS CONTIN [Suspect]
     Active Substance: MORPHINE SULFATE
     Route: 065
  36. OXYCODONE [Suspect]
     Active Substance: OXYCODONE
     Route: 065
  37. ACETAMINOPHEN W/OXYCODONE [Suspect]
     Active Substance: ACETAMINOPHEN\OXYCODONE HYDROCHLORIDE
     Route: 065
  38. OXYCONTIN [Suspect]
     Active Substance: OXYCODONE HYDROCHLORIDE
     Route: 065
  39. OXYCONTIN [Suspect]
     Active Substance: OXYCODONE HYDROCHLORIDE
     Route: 065
  40. OXYCONTIN [Suspect]
     Active Substance: OXYCODONE HYDROCHLORIDE
     Route: 065
  41. OXYCONTIN [Suspect]
     Active Substance: OXYCODONE HYDROCHLORIDE
     Route: 065
  42. OXYCONTIN [Suspect]
     Active Substance: OXYCODONE HYDROCHLORIDE
     Route: 065
  43. OXYCODONE [Suspect]
     Active Substance: OXYCODONE
     Route: 048
  44. SUPEUDOL [Suspect]
     Active Substance: OXYCODONE HYDROCHLORIDE
     Route: 065
  45. SUPEUDOL [Suspect]
     Active Substance: OXYCODONE HYDROCHLORIDE
     Route: 065
  46. ALDACTONE [Concomitant]
     Active Substance: SPIRONOLACTONE
  47. GEMFIBROZIL. [Concomitant]
     Active Substance: GEMFIBROZIL
  48. LOMOTIL [Concomitant]
     Active Substance: ATROPINE SULFATE\DIPHENOXYLATE HYDROCHLORIDE
  49. POTASSIUM CHLORIDE. [Concomitant]
     Active Substance: POTASSIUM CHLORIDE
  50. RISPERDAL [Concomitant]
     Active Substance: RISPERIDONE
  51. SLOW-K [Concomitant]
     Active Substance: POTASSIUM CHLORIDE
     Dosage: FORM: TABLET, SUGAR COATED
  52. TYLENOL EXTRA STRENGTH [Concomitant]
     Active Substance: ACETAMINOPHEN
  53. WARFARIN [Concomitant]
     Active Substance: WARFARIN
  54. MORPHINE SULFATE. [Suspect]
     Active Substance: MORPHINE SULFATE
     Dosage: STRENGTH: 10 MG
     Route: 065
  55. OXYCODONE [Suspect]
     Active Substance: OXYCODONE
     Route: 065
  56. OXYCONTIN [Suspect]
     Active Substance: OXYCODONE HYDROCHLORIDE
     Route: 065
  57. FENTANYL. [Suspect]
     Active Substance: FENTANYL
     Dosage: FORM: PATCH
     Route: 065
  58. CLINDAMYCIN [Concomitant]
     Active Substance: CLINDAMYCIN\CLINDAMYCIN PHOSPHATE
  59. CHAMPIX [Concomitant]
     Active Substance: VARENICLINE TARTRATE
  60. CREON [Concomitant]
     Active Substance: PANCRELIPASE AMYLASE\PANCRELIPASE LIPASE\PANCRELIPASE PROTEASE
  61. NICOTINE POLACRILEX [Concomitant]
     Active Substance: NICOTINE
     Dosage: FORM: GUM
  62. LORAZEPAM. [Concomitant]
     Active Substance: LORAZEPAM
  63. VICTOZA [Concomitant]
     Active Substance: LIRAGLUTIDE
     Dosage: MULTIDOSE PENINJECTOR. 30DOSES(0.6MG)-15DOSES(1.2MG)-10DOSES(1.8MG).1/2/3;FORM:SOLUTION SUBCUTANEOUS
  64. DEMEROL [Suspect]
     Active Substance: MEPERIDINE HYDROCHLORIDE
     Route: 030
  65. HYDROMORPH CONTIN [Suspect]
     Active Substance: HYDROMORPHONE
     Route: 065
  66. OXYCODONE [Suspect]
     Active Substance: OXYCODONE
     Route: 065
  67. OXYCONTIN [Suspect]
     Active Substance: OXYCODONE HYDROCHLORIDE
     Route: 065
  68. OXYCONTIN [Suspect]
     Active Substance: OXYCODONE HYDROCHLORIDE
     Route: 065
  69. PMS-HYDROMORPHONE [Suspect]
     Active Substance: HYDROMORPHONE HYDROCHLORIDE
     Route: 065
  70. PMS-HYDROMORPHONE [Suspect]
     Active Substance: HYDROMORPHONE HYDROCHLORIDE
     Route: 065
  71. SUPEUDOL [Suspect]
     Active Substance: OXYCODONE HYDROCHLORIDE
     Route: 065
  72. BENADRYL [Concomitant]
     Active Substance: DIPHENHYDRAMINE HYDROCHLORIDE
  73. DIPROSALIC /DEN/ [Concomitant]
  74. DOMPERIDONE [Concomitant]
     Active Substance: DOMPERIDONE
  75. HUMALOG [Concomitant]
     Active Substance: INSULIN LISPRO
  76. HUMULIN N [Concomitant]
     Active Substance: INSULIN HUMAN
     Dosage: FORM:SUSPENSION SUBCUTANEOUS
  77. NIACIN. [Concomitant]
     Active Substance: NIACIN
  78. NIASPAN [Concomitant]
     Active Substance: NIACIN
  79. NORTRIPTYLINE [Concomitant]
     Active Substance: NORTRIPTYLINE
  80. RAMIPRIL. [Concomitant]
     Active Substance: RAMIPRIL
  81. RAMIPRIL. [Concomitant]
     Active Substance: RAMIPRIL
  82. ZANTAC [Concomitant]
     Active Substance: RANITIDINE HYDROCHLORIDE
  83. OXYCODONE [Suspect]
     Active Substance: OXYCODONE
     Route: 065
  84. OXYCODONE [Suspect]
     Active Substance: OXYCODONE
     Route: 065
  85. OXYCONTIN [Suspect]
     Active Substance: OXYCODONE HYDROCHLORIDE
     Route: 065
  86. OXYCONTIN [Suspect]
     Active Substance: OXYCODONE HYDROCHLORIDE
     Route: 065
  87. OXYCONTIN [Suspect]
     Active Substance: OXYCODONE HYDROCHLORIDE
     Route: 065
  88. OXYCONTIN [Suspect]
     Active Substance: OXYCODONE HYDROCHLORIDE
     Route: 065
  89. OXYCODONE [Suspect]
     Active Substance: OXYCODONE
     Route: 065
  90. OXYCODONE/APAP [Suspect]
     Active Substance: ACETAMINOPHEN\OXYCODONE HYDROCHLORIDE
     Route: 065
  91. ASPIRIN. [Concomitant]
     Active Substance: ASPIRIN
  92. DIAZEPAM. [Concomitant]
     Active Substance: DIAZEPAM
  93. BACLOFEN. [Concomitant]
     Active Substance: BACLOFEN
     Dosage: STRENGTH: 10 MG
  94. GABAPENTIN. [Concomitant]
     Active Substance: GABAPENTIN
  95. ELAVIL [Concomitant]
     Active Substance: AMITRIPTYLINE HYDROCHLORIDE
  96. FENOFIBRATE. [Concomitant]
     Active Substance: FENOFIBRATE
  97. HUMULIN R [Concomitant]
     Active Substance: INSULIN HUMAN
     Dosage: FORM: SOLUTION INTRAMUSCULAR
  98. LEVEMIR [Concomitant]
     Active Substance: INSULIN DETEMIR
     Dosage: FORM: SOLUTION SUBCUTANEOUS
  99. ALL OTHER THERAPEUTIC PRODUCTS [Concomitant]
     Active Substance: UNSPECIFIED INGREDIENT
  100. RANITIDINE [Concomitant]
     Active Substance: RANITIDINE\RANITIDINE HYDROCHLORIDE
  101. STEMETIL [Concomitant]
     Active Substance: PROCHLORPERAZINE MALEATE
  102. HYDROMORPH CONTIN [Suspect]
     Active Substance: HYDROMORPHONE
     Route: 065
  103. OXYCODONE [Suspect]
     Active Substance: OXYCODONE
     Route: 065
  104. OXYCODONE [Suspect]
     Active Substance: OXYCODONE
     Route: 048
  105. OXYCONTIN [Suspect]
     Active Substance: OXYCODONE HYDROCHLORIDE
     Route: 065
  106. OXYCONTIN [Suspect]
     Active Substance: OXYCODONE HYDROCHLORIDE
     Route: 065
  107. OXYCONTIN [Suspect]
     Active Substance: OXYCODONE HYDROCHLORIDE
     Route: 065
  108. OXYCONTIN [Suspect]
     Active Substance: OXYCODONE HYDROCHLORIDE
     Route: 065
  109. OXYCODONE [Suspect]
     Active Substance: OXYCODONE
     Route: 065
  110. OXYCODONE [Suspect]
     Active Substance: OXYCODONE
     Route: 065
  111. SUPEUDOL [Suspect]
     Active Substance: OXYCODONE HYDROCHLORIDE
     Route: 065
  112. RAMIPRIL. [Concomitant]
     Active Substance: RAMIPRIL
  113. CRESTOR [Concomitant]
     Active Substance: ROSUVASTATIN CALCIUM
  114. LIPITOR [Concomitant]
     Active Substance: ATORVASTATIN CALCIUM
  115. METFORMIN [Concomitant]
     Active Substance: METFORMIN HYDROCHLORIDE
  116. NU-RANIT [Concomitant]
  117. PANTOLOC [Concomitant]
     Active Substance: PANTOPRAZOLE SODIUM
     Dosage: FORM: ENTERIC COATED TABLET
  118. FENTANYL. [Suspect]
     Active Substance: FENTANYL
     Route: 065
  119. HYDROMORPH CONTIN [Suspect]
     Active Substance: HYDROMORPHONE
     Route: 065
  120. HYDROMORPHONE [Suspect]
     Active Substance: HYDROMORPHONE
     Route: 065
  121. MORPHINE SULFATE. [Suspect]
     Active Substance: MORPHINE SULFATE
     Route: 065
  122. OPIOID ANAESTHETICS [Suspect]
     Active Substance: UNSPECIFIED INGREDIENT
     Route: 065
  123. OXYCODONE [Suspect]
     Active Substance: OXYCODONE
     Route: 065
  124. OXYCODONE [Suspect]
     Active Substance: OXYCODONE
     Route: 065
  125. OXYCONTIN [Suspect]
     Active Substance: OXYCODONE HYDROCHLORIDE
     Route: 065
  126. OXYCONTIN [Suspect]
     Active Substance: OXYCODONE HYDROCHLORIDE
     Route: 065
  127. OXYCODONE [Suspect]
     Active Substance: OXYCODONE
     Route: 065
  128. OXYCODONE [Suspect]
     Active Substance: OXYCODONE
     Route: 065
  129. CREON [Concomitant]
     Active Substance: PANCRELIPASE AMYLASE\PANCRELIPASE LIPASE\PANCRELIPASE PROTEASE
  130. DICETEL [Concomitant]
     Active Substance: PINAVERIUM BROMIDE
  131. FUROSEMIDE. [Concomitant]
     Active Substance: FUROSEMIDE
  132. IBUPROFEN. [Concomitant]
     Active Substance: IBUPROFEN
  133. INSULIN [Concomitant]
     Active Substance: INSULIN NOS
  134. INSULIN-MONO N [Concomitant]
  135. METRONIDAZOLE. [Concomitant]
     Active Substance: METRONIDAZOLE
  136. NICODERM CQ [Concomitant]
     Active Substance: NICOTINE
     Dosage: FORM: PATCH
  137. NOVORAPID [Concomitant]
     Active Substance: INSULIN ASPART
  138. FUROSEMIDE. [Concomitant]
     Active Substance: FUROSEMIDE
  139. ALL OTHER THERAPEUTIC PRODUCTS [Concomitant]
     Active Substance: UNSPECIFIED INGREDIENT
  140. CIPROFLOXACIN. [Concomitant]
     Active Substance: CIPROFLOXACIN

REACTIONS (65)
  - Diarrhoea [Unknown]
  - Depressed level of consciousness [Unknown]
  - Hyperventilation [Unknown]
  - Pancreatic mass [Unknown]
  - Pulmonary embolism [Unknown]
  - Somnolence [Unknown]
  - Drug withdrawal syndrome [Unknown]
  - Drug dependence [Unknown]
  - Azotaemia [Unknown]
  - Liver function test abnormal [Unknown]
  - Local swelling [Unknown]
  - Metabolic encephalopathy [Unknown]
  - Pain [Unknown]
  - Substance abuse [Unknown]
  - Diabetes mellitus [Unknown]
  - Anxiety [Unknown]
  - Headache [Unknown]
  - Hiccups [Unknown]
  - Skin ulcer [Unknown]
  - Sleep apnoea syndrome [Unknown]
  - Stasis dermatitis [Unknown]
  - Varicose vein [Unknown]
  - Peripheral venous disease [Unknown]
  - Vomiting [Unknown]
  - Fluid retention [Unknown]
  - Hypercholesterolaemia [Unknown]
  - Hyperglycaemia [Unknown]
  - Inflammation [Unknown]
  - Jaundice [Unknown]
  - Orthopnoea [Unknown]
  - Osteoarthritis [Unknown]
  - Pancreatic cyst [Unknown]
  - Prerenal failure [Unknown]
  - Stress [Unknown]
  - Urinary tract obstruction [Unknown]
  - Weight increased [Unknown]
  - Confusional state [Unknown]
  - Dyskinesia [Unknown]
  - Dyslipidaemia [Unknown]
  - Erosive duodenitis [Unknown]
  - Hyperlipidaemia [Unknown]
  - Lymphoedema [Unknown]
  - Malaise [Unknown]
  - Pruritus generalised [Unknown]
  - Agitation [Unknown]
  - Accidental overdose [Unknown]
  - Deep vein thrombosis [Unknown]
  - Chronic obstructive pulmonary disease [Unknown]
  - Cellulitis [Unknown]
  - Dyspnoea exertional [Unknown]
  - Abdominal pain [Unknown]
  - Hyperhidrosis [Unknown]
  - Drug ineffective [Unknown]
  - Duodenitis [Unknown]
  - Eczema [Unknown]
  - Feeling of body temperature change [Unknown]
  - Respiratory depression [Unknown]
  - Irritability [Unknown]
  - Drug tolerance increased [Unknown]
  - Cholecystitis [Unknown]
  - Hepatic steatosis [Unknown]
  - Hyperbilirubinaemia [Unknown]
  - Piloerection [Unknown]
  - Nausea [Unknown]
  - Off label use [Unknown]
